FAERS Safety Report 18364700 (Version 1)
Quarter: 2020Q4

REPORT INFORMATION
  Report Type: Spontaneous
  Country: US (occurrence: US)
  Receive Date: 20201008
  Receipt Date: 20201008
  Transmission Date: 20210114
  Serious: Yes (Hospitalization)
  Sender: FDA-Public Use
  Company Number: None

PATIENT
  Age: 73 Year
  Sex: Male

DRUGS (12)
  1. CARVEDILOL. [Concomitant]
     Active Substance: CARVEDILOL
  2. MEDIETINE [Concomitant]
  3. XARELTO [Concomitant]
     Active Substance: RIVAROXABAN
  4. ASPIRIN. [Concomitant]
     Active Substance: ASPIRIN
  5. FINASTERIDE. [Concomitant]
     Active Substance: FINASTERIDE
  6. REPATHA [Suspect]
     Active Substance: EVOLOCUMAB
     Indication: HYPERLIPIDAEMIA
     Dosage: NOT PROVIDED
  7. FUROSEMIDE. [Concomitant]
     Active Substance: FUROSEMIDE
  8. LATANOPROST. [Concomitant]
     Active Substance: LATANOPROST
  9. PROVENTI AER HFA [Concomitant]
  10. AMODARONE [Concomitant]
  11. ENTRESTO [Concomitant]
     Active Substance: SACUBITRIL\VALSARTAN
  12. LOMOTIL MULTIPLE VITAMIN TAB [Concomitant]

REACTIONS (3)
  - Diarrhoea [None]
  - Influenza like illness [None]
  - Muscular weakness [None]

NARRATIVE: CASE EVENT DATE: 20200921
